FAERS Safety Report 23201468 (Version 1)
Quarter: 2023Q4

REPORT INFORMATION
  Report Type: Spontaneous
  Country: US (occurrence: US)
  Receive Date: 20231118
  Receipt Date: 20231118
  Transmission Date: 20240109
  Serious: Yes (Hospitalization, Other)
  Sender: FDA-Public Use
  Company Number: US-UNITED THERAPEUTICS-UNT-2023-026556

PATIENT
  Sex: Female
  Weight: 113.38 kg

DRUGS (14)
  1. REMODULIN [Suspect]
     Active Substance: TREPROSTINIL
     Indication: Pulmonary arterial hypertension
     Dosage: UNK, CONTINUING
     Route: 058
     Dates: start: 20190910, end: 20230906
  2. REMODULIN [Suspect]
     Active Substance: TREPROSTINIL
     Indication: Pulmonary arterial hypertension
     Dosage: 0.0755 ?G/KG, CONTINUING
     Route: 041
     Dates: start: 202309
  3. REMODULIN [Suspect]
     Active Substance: TREPROSTINIL
     Dosage: 0.0615 ?G/KG, CONTINUING
     Route: 041
     Dates: start: 202309
  4. REMODULIN [Suspect]
     Active Substance: TREPROSTINIL
     Dosage: 0.0675 ?G/KG, CONTINUING
     Route: 041
     Dates: start: 2023
  5. REMODULIN [Suspect]
     Active Substance: TREPROSTINIL
     Dosage: UNK, CONTINUING
     Route: 041
     Dates: start: 20230906
  6. ADCIRCA [Concomitant]
     Active Substance: TADALAFIL
     Indication: Product used for unknown indication
     Dosage: UNK
     Route: 065
  7. BREO ELLIPTA [Concomitant]
     Active Substance: FLUTICASONE FUROATE\VILANTEROL TRIFENATATE
     Indication: Product used for unknown indication
     Dosage: UNK
     Route: 065
  8. FISH OIL [Concomitant]
     Active Substance: FISH OIL
     Indication: Product used for unknown indication
     Dosage: UNK
     Route: 065
  9. FUROSEMIDE [Concomitant]
     Active Substance: FUROSEMIDE
     Indication: Product used for unknown indication
     Dosage: UNK
     Route: 065
  10. VITAMINS [Concomitant]
     Active Substance: VITAMINS
     Indication: Product used for unknown indication
     Route: 065
  11. POTASSIUM CHLORIDE [Concomitant]
     Active Substance: POTASSIUM CHLORIDE
     Indication: Product used for unknown indication
     Route: 065
  12. OPSUMIT [Concomitant]
     Active Substance: MACITENTAN
     Indication: Product used for unknown indication
     Dosage: UNK
     Route: 065
  13. TRAMADOL [Concomitant]
     Active Substance: TRAMADOL\TRAMADOL HYDROCHLORIDE
     Indication: Product used for unknown indication
     Dosage: UNK
     Route: 065
  14. UPTRAVI [Concomitant]
     Active Substance: SELEXIPAG
     Indication: Product used for unknown indication
     Dosage: UNK
     Route: 065

REACTIONS (17)
  - Catheter site pain [Unknown]
  - Catheter site discharge [Not Recovered/Not Resolved]
  - Purulent discharge [Unknown]
  - Sepsis [Unknown]
  - Pyrexia [Unknown]
  - Catheter site infection [Not Recovered/Not Resolved]
  - Catheter site rash [Unknown]
  - Catheter site pustule [Unknown]
  - Infusion site pain [Unknown]
  - Infusion site extravasation [Unknown]
  - Device maintenance issue [Unknown]
  - Weight increased [Unknown]
  - Mobility decreased [Not Recovered/Not Resolved]
  - Dyspnoea [Unknown]
  - Dermatitis contact [Unknown]
  - Injection site reaction [Not Recovered/Not Resolved]
  - Injection site exfoliation [Unknown]

NARRATIVE: CASE EVENT DATE: 20220101
